FAERS Safety Report 10250855 (Version 1)
Quarter: 2014Q2

REPORT INFORMATION
  Report Type: Spontaneous
  Country: US (occurrence: US)
  Receive Date: 20140620
  Receipt Date: 20140620
  Transmission Date: 20141212
  Serious: Yes (Other)
  Sender: FDA-Public Use
  Company Number: US-AMGEN INC.-USASP2014045067

PATIENT
  Sex: Male

DRUGS (1)
  1. XGEVA [Suspect]
     Indication: BONE DISORDER
     Dosage: UNK, QMO
     Route: 065

REACTIONS (3)
  - Metastases to bone [Unknown]
  - Pancreatic carcinoma [Unknown]
  - Back pain [Unknown]
